FAERS Safety Report 21607434 (Version 3)
Quarter: 2023Q1

REPORT INFORMATION
  Report Type: Report from Study
  Country: US (occurrence: US)
  Receive Date: 20221117
  Receipt Date: 20230312
  Transmission Date: 20230418
  Serious: No
  Sender: FDA-Public Use
  Company Number: US-002147023-NVSC2022US258821

PATIENT
  Age: 6 Year
  Sex: Female

DRUGS (2)
  1. ILARIS [Suspect]
     Active Substance: CANAKINUMAB
     Indication: Pyrexia
     Dosage: 30 MG, EVERY 8 WEEKS
     Route: 058
     Dates: start: 20210513
  2. ILARIS [Suspect]
     Active Substance: CANAKINUMAB
     Dosage: 30 MG, EVERY 7 WEEKS
     Route: 058
     Dates: start: 202105

REACTIONS (4)
  - COVID-19 [Recovered/Resolved]
  - Nasal congestion [Recovering/Resolving]
  - Pyrexia [Recovering/Resolving]
  - Cough [Recovered/Resolved]

NARRATIVE: CASE EVENT DATE: 20221103
